FAERS Safety Report 24560348 (Version 3)
Quarter: 2025Q3

REPORT INFORMATION
  Report Type: Spontaneous
  Country: GB (occurrence: GB)
  Receive Date: 20241029
  Receipt Date: 20250708
  Transmission Date: 20251021
  Serious: Yes (Hospitalization, Other)
  Sender: MYLAN
  Company Number: GB-MYLANLABS-2024M1096720

PATIENT
  Age: 62 Year
  Sex: Male

DRUGS (20)
  1. CLOZARIL [Suspect]
     Active Substance: CLOZAPINE
     Indication: Schizophrenia
     Route: 048
     Dates: start: 20010701, end: 20241010
  2. CLOZARIL [Suspect]
     Active Substance: CLOZAPINE
     Dates: start: 20010701, end: 20241010
  3. CLOZARIL [Suspect]
     Active Substance: CLOZAPINE
     Dates: start: 20010701, end: 20241010
  4. CLOZARIL [Suspect]
     Active Substance: CLOZAPINE
     Route: 048
     Dates: start: 20010701, end: 20241010
  5. CLOZARIL [Suspect]
     Active Substance: CLOZAPINE
     Dosage: UNK UNK, BID, (25 MILLIGRAM MORNING AND 250 MILLIGRAM AT NIGHT FOR 2 DAYS)
     Route: 048
     Dates: start: 20241013
  6. CLOZARIL [Suspect]
     Active Substance: CLOZAPINE
     Dosage: UNK UNK, BID, (25 MILLIGRAM MORNING AND 250 MILLIGRAM AT NIGHT FOR 2 DAYS)
     Dates: start: 20241013
  7. CLOZARIL [Suspect]
     Active Substance: CLOZAPINE
     Dosage: UNK UNK, BID, (25 MILLIGRAM MORNING AND 250 MILLIGRAM AT NIGHT FOR 2 DAYS)
     Dates: start: 20241013
  8. CLOZARIL [Suspect]
     Active Substance: CLOZAPINE
     Dosage: UNK UNK, BID, (25 MILLIGRAM MORNING AND 250 MILLIGRAM AT NIGHT FOR 2 DAYS)
     Route: 048
     Dates: start: 20241013
  9. CLOZARIL [Suspect]
     Active Substance: CLOZAPINE
     Dosage: UNK UNK, BID, (50 MILLIGRAM MORNING AND 250 MILLIGRAM AT NIGHT FOR 2 DAYS)
     Dates: start: 20241015
  10. CLOZARIL [Suspect]
     Active Substance: CLOZAPINE
     Dosage: UNK UNK, BID, (50 MILLIGRAM MORNING AND 250 MILLIGRAM AT NIGHT FOR 2 DAYS)
     Dates: start: 20241015
  11. CLOZARIL [Suspect]
     Active Substance: CLOZAPINE
     Dosage: UNK UNK, BID, (50 MILLIGRAM MORNING AND 250 MILLIGRAM AT NIGHT FOR 2 DAYS)
     Route: 048
     Dates: start: 20241015
  12. CLOZARIL [Suspect]
     Active Substance: CLOZAPINE
     Dosage: UNK UNK, BID, (50 MILLIGRAM MORNING AND 250 MILLIGRAM AT NIGHT FOR 2 DAYS)
     Route: 048
     Dates: start: 20241015
  13. CLOZARIL [Suspect]
     Active Substance: CLOZAPINE
     Dosage: UNK UNK, BID, (25 MILLIGRAM MORNING AND 250 MILLIGRAM AT NIGHT)
     Dates: start: 20241017
  14. CLOZARIL [Suspect]
     Active Substance: CLOZAPINE
     Dosage: UNK UNK, BID, (25 MILLIGRAM MORNING AND 250 MILLIGRAM AT NIGHT)
     Dates: start: 20241017
  15. CLOZARIL [Suspect]
     Active Substance: CLOZAPINE
     Dosage: UNK UNK, BID, (25 MILLIGRAM MORNING AND 250 MILLIGRAM AT NIGHT)
     Route: 048
     Dates: start: 20241017
  16. CLOZARIL [Suspect]
     Active Substance: CLOZAPINE
     Dosage: UNK UNK, BID, (25 MILLIGRAM MORNING AND 250 MILLIGRAM AT NIGHT)
     Route: 048
     Dates: start: 20241017
  17. ACETAMINOPHEN [Concomitant]
     Active Substance: ACETAMINOPHEN
     Indication: Arthritis
  18. ACETAMINOPHEN [Concomitant]
     Active Substance: ACETAMINOPHEN
     Route: 065
  19. ACETAMINOPHEN [Concomitant]
     Active Substance: ACETAMINOPHEN
     Route: 065
  20. ACETAMINOPHEN [Concomitant]
     Active Substance: ACETAMINOPHEN

REACTIONS (7)
  - Pulmonary embolism [Unknown]
  - Cardiac valve fibroelastoma [Unknown]
  - Cardiac ventricular thrombosis [Unknown]
  - Aortic stenosis [Unknown]
  - Aortic valve incompetence [Unknown]
  - Malaise [Unknown]
  - Therapy interrupted [Unknown]

NARRATIVE: CASE EVENT DATE: 20241001
